FAERS Safety Report 9122348 (Version 1)
Quarter: 2013Q1

REPORT INFORMATION
  Report Type: Spontaneous
  Country: US (occurrence: US)
  Receive Date: 20130227
  Receipt Date: 20130227
  Transmission Date: 20140127
  Serious: Yes (Other)
  Sender: FDA-Public Use
  Company Number: US-PFIZER INC-2013067940

PATIENT
  Age: 69 Year
  Sex: Female

DRUGS (1)
  1. INLYTA [Suspect]
     Indication: RENAL CANCER
     Dosage: 10 MG, 2X/DAY
     Route: 048
     Dates: start: 20120402, end: 20130206

REACTIONS (5)
  - Muscle disorder [Unknown]
  - Somnolence [Unknown]
  - Aphasia [Unknown]
  - Disease progression [Unknown]
  - Renal cancer [Unknown]
